FAERS Safety Report 9359934 (Version 3)
Quarter: 2014Q1

REPORT INFORMATION
  Report Type: Spontaneous
  Country: US (occurrence: None)
  Receive Date: 20130608
  Receipt Date: 20140318
  Transmission Date: 20141002
  Serious: Yes (Other)
  Sender: FDA-Public Use
  Company Number: 2013CT000023

PATIENT
  Age: 45 Year
  Sex: Female
  Weight: 83.92 kg

DRUGS (8)
  1. KORLYM [Suspect]
     Indication: CUSHING^S SYNDROME
     Route: 048
     Dates: start: 201302
  2. KORLYM [Suspect]
     Indication: BENIGN NEOPLASM OF ADRENAL GLAND
     Route: 048
     Dates: start: 201302
  3. ZETIA [Concomitant]
  4. PRAVASTATIN [Concomitant]
  5. FENOFIBRATE [Concomitant]
  6. MIRALAX [Concomitant]
  7. EYE VITAMINS [Concomitant]
  8. PRENATAL VITAMINS [Concomitant]

REACTIONS (11)
  - Hepatic enzyme increased [None]
  - Weight decreased [None]
  - Fatigue [None]
  - Constipation [None]
  - Migraine [None]
  - Sleep disorder [None]
  - Libido disorder [None]
  - Lactation disorder [None]
  - Blood cholesterol increased [None]
  - Stress [None]
  - Myalgia [None]
